FAERS Safety Report 25068374 (Version 1)
Quarter: 2025Q1

REPORT INFORMATION
  Report Type: Other
  Country: CA (occurrence: CA)
  Receive Date: 20250312
  Receipt Date: 20250312
  Transmission Date: 20250408
  Serious: Yes (Other)
  Sender: BIOCON
  Company Number: CA-BIOCON BIOLOGICS LIMITED-BBL2025001342

PATIENT

DRUGS (250)
  1. ADALIMUMAB [Suspect]
     Active Substance: ADALIMUMAB
     Indication: Deep vein thrombosis
     Route: 065
  2. ADALIMUMAB [Suspect]
     Active Substance: ADALIMUMAB
     Indication: Crohn^s disease
     Route: 065
  3. ADALIMUMAB [Suspect]
     Active Substance: ADALIMUMAB
     Route: 065
  4. ADALIMUMAB [Suspect]
     Active Substance: ADALIMUMAB
     Route: 065
  5. ASTRAZENECA COVID-19 VACCINE [Suspect]
     Active Substance: AZD-1222
     Indication: COVID-19 immunisation
     Route: 065
  6. ASTRAZENECA COVID-19 VACCINE [Suspect]
     Active Substance: AZD-1222
     Route: 065
  7. ASTRAZENECA COVID-19 VACCINE [Suspect]
     Active Substance: AZD-1222
     Route: 065
  8. ASTRAZENECA COVID-19 VACCINE [Suspect]
     Active Substance: AZD-1222
     Route: 065
  9. ASTRAZENECA COVID-19 VACCINE [Suspect]
     Active Substance: AZD-1222
     Route: 065
  10. ASTRAZENECA COVID-19 VACCINE [Suspect]
     Active Substance: AZD-1222
     Route: 065
  11. ASTRAZENECA COVID-19 VACCINE [Suspect]
     Active Substance: AZD-1222
     Route: 065
  12. ASTRAZENECA COVID-19 VACCINE [Suspect]
     Active Substance: AZD-1222
     Route: 065
  13. ASTRAZENECA COVID-19 VACCINE [Suspect]
     Active Substance: AZD-1222
     Route: 065
  14. ASTRAZENECA COVID-19 VACCINE [Suspect]
     Active Substance: AZD-1222
     Route: 065
  15. ASTRAZENECA COVID-19 VACCINE [Suspect]
     Active Substance: AZD-1222
     Route: 065
  16. ASTRAZENECA COVID-19 VACCINE [Suspect]
     Active Substance: AZD-1222
     Route: 065
  17. ASTRAZENECA COVID-19 VACCINE [Suspect]
     Active Substance: AZD-1222
     Route: 065
  18. ASTRAZENECA COVID-19 VACCINE [Suspect]
     Active Substance: AZD-1222
     Route: 065
  19. ASTRAZENECA COVID-19 VACCINE [Suspect]
     Active Substance: AZD-1222
     Route: 065
  20. ASTRAZENECA COVID-19 VACCINE [Suspect]
     Active Substance: AZD-1222
     Route: 065
  21. ASTRAZENECA COVID-19 VACCINE [Suspect]
     Active Substance: AZD-1222
     Route: 065
  22. MESALAMINE [Suspect]
     Active Substance: MESALAMINE
     Indication: Colitis ulcerative
     Dosage: 1 EVERY 1 DAYS,
     Route: 065
  23. MESALAMINE [Suspect]
     Active Substance: MESALAMINE
     Dosage: 2.4 GRAM 1 EVERY 1 DAYS
     Route: 065
  24. MESALAMINE [Suspect]
     Active Substance: MESALAMINE
     Route: 048
  25. MESALAMINE [Suspect]
     Active Substance: MESALAMINE
     Route: 065
  26. MESALAMINE [Suspect]
     Active Substance: MESALAMINE
     Route: 048
  27. MESALAMINE [Suspect]
     Active Substance: MESALAMINE
     Route: 065
  28. MESALAMINE [Suspect]
     Active Substance: MESALAMINE
     Route: 048
  29. MESALAMINE [Suspect]
     Active Substance: MESALAMINE
     Dosage: 4.8 GRAMS 1 EVERY 1 DAYS
     Route: 065
  30. MESALAMINE [Suspect]
     Active Substance: MESALAMINE
     Route: 065
  31. MESALAMINE [Suspect]
     Active Substance: MESALAMINE
     Route: 048
  32. MESALAMINE [Suspect]
     Active Substance: MESALAMINE
     Dosage: 66 DOSAGE FORM 1 EVERY 1 DAYS
     Route: 065
  33. MESALAMINE [Suspect]
     Active Substance: MESALAMINE
     Dosage: UNK 1 EVERY 1 DAYS
     Route: 065
  34. MESALAMINE [Suspect]
     Active Substance: MESALAMINE
     Route: 065
  35. MESALAMINE [Suspect]
     Active Substance: MESALAMINE
     Dosage: 2.4 GRAM 1 EVERY 1 DAYS
     Route: 065
  36. MESALAMINE [Suspect]
     Active Substance: MESALAMINE
     Route: 065
  37. MESALAMINE [Suspect]
     Active Substance: MESALAMINE
     Dosage: 4.8 GRAM 1 EVERY 1 DAYS
     Route: 065
  38. MESALAMINE [Suspect]
     Active Substance: MESALAMINE
     Route: 048
  39. MESALAMINE [Suspect]
     Active Substance: MESALAMINE
     Route: 065
  40. MESALAMINE [Suspect]
     Active Substance: MESALAMINE
     Route: 065
  41. MESALAMINE [Suspect]
     Active Substance: MESALAMINE
     Route: 065
  42. MESALAMINE [Suspect]
     Active Substance: MESALAMINE
     Route: 065
  43. MESALAMINE [Suspect]
     Active Substance: MESALAMINE
     Route: 065
  44. MESALAMINE [Suspect]
     Active Substance: MESALAMINE
     Route: 048
  45. MESALAMINE [Suspect]
     Active Substance: MESALAMINE
     Route: 048
  46. MESALAMINE [Suspect]
     Active Substance: MESALAMINE
     Route: 065
  47. MESALAMINE [Suspect]
     Active Substance: MESALAMINE
     Route: 065
  48. MESALAMINE [Suspect]
     Active Substance: MESALAMINE
     Route: 065
  49. MESALAMINE [Suspect]
     Active Substance: MESALAMINE
     Route: 065
  50. MESALAMINE [Suspect]
     Active Substance: MESALAMINE
     Route: 065
  51. MESALAMINE [Suspect]
     Active Substance: MESALAMINE
     Route: 065
  52. MESALAMINE [Suspect]
     Active Substance: MESALAMINE
     Dosage: 2.4 GRAM 1 EVERY 1 DAYS
     Route: 065
  53. MESALAMINE [Suspect]
     Active Substance: MESALAMINE
     Route: 065
  54. MESALAMINE [Suspect]
     Active Substance: MESALAMINE
     Route: 065
  55. MESALAMINE [Suspect]
     Active Substance: MESALAMINE
     Route: 065
  56. MESALAMINE [Suspect]
     Active Substance: MESALAMINE
     Dosage: UNK 1 EVERY 1 DAYS
     Route: 065
  57. MESALAMINE [Suspect]
     Active Substance: MESALAMINE
     Route: 048
  58. MESALAMINE [Suspect]
     Active Substance: MESALAMINE
     Route: 065
  59. MESALAMINE [Suspect]
     Active Substance: MESALAMINE
     Route: 065
  60. MESALAMINE [Suspect]
     Active Substance: MESALAMINE
     Route: 065
  61. MESALAMINE [Suspect]
     Active Substance: MESALAMINE
     Route: 065
  62. MESALAMINE [Suspect]
     Active Substance: MESALAMINE
     Route: 065
  63. MESALAMINE [Suspect]
     Active Substance: MESALAMINE
     Route: 048
  64. MESALAMINE [Suspect]
     Active Substance: MESALAMINE
     Dosage: 6 DOSAGE FORM 1 EVERY 1 DAYS
     Route: 048
  65. MESALAMINE [Suspect]
     Active Substance: MESALAMINE
     Route: 065
  66. MESALAMINE [Suspect]
     Active Substance: MESALAMINE
     Route: 048
  67. MESALAMINE [Suspect]
     Active Substance: MESALAMINE
     Route: 048
  68. MESALAMINE [Suspect]
     Active Substance: MESALAMINE
     Route: 048
  69. MESALAMINE [Suspect]
     Active Substance: MESALAMINE
     Route: 048
  70. MESALAMINE [Suspect]
     Active Substance: MESALAMINE
     Route: 065
  71. MESALAMINE [Suspect]
     Active Substance: MESALAMINE
     Dosage: 4.8 MILLIGRAM 1 EVERY 1 DAYS
     Route: 065
  72. BUDESONIDE [Suspect]
     Active Substance: BUDESONIDE
     Indication: Colitis ulcerative
     Route: 048
  73. BUDESONIDE [Suspect]
     Active Substance: BUDESONIDE
     Route: 048
  74. BUDESONIDE [Suspect]
     Active Substance: BUDESONIDE
     Dosage: UNK UNK, Q24H
     Route: 048
  75. BUDESONIDE [Suspect]
     Active Substance: BUDESONIDE
     Dosage: 8 DOSAGE FORM 1 EVERY 1 DAYS
     Route: 048
  76. BUDESONIDE [Suspect]
     Active Substance: BUDESONIDE
     Route: 048
  77. BUDESONIDE [Suspect]
     Active Substance: BUDESONIDE
     Route: 048
  78. BUDESONIDE [Suspect]
     Active Substance: BUDESONIDE
     Route: 048
  79. BUDESONIDE [Suspect]
     Active Substance: BUDESONIDE
     Route: 048
  80. BUDESONIDE [Suspect]
     Active Substance: BUDESONIDE
     Route: 048
  81. BUDESONIDE [Suspect]
     Active Substance: BUDESONIDE
     Dosage: 1 DOSAGE FORM 1 EVERY 1 DAYS
     Route: 048
  82. BUDESONIDE [Suspect]
     Active Substance: BUDESONIDE
     Route: 048
  83. BUDESONIDE [Suspect]
     Active Substance: BUDESONIDE
     Route: 048
  84. BUDESONIDE [Suspect]
     Active Substance: BUDESONIDE
     Route: 048
  85. BUDESONIDE [Suspect]
     Active Substance: BUDESONIDE
     Dosage: 8 DOSAGE FORM 1 EVERY 1 DAYS
     Route: 048
  86. BUDESONIDE [Suspect]
     Active Substance: BUDESONIDE
     Route: 065
  87. BUDESONIDE [Suspect]
     Active Substance: BUDESONIDE
     Dosage: UNK UNK, QD
     Route: 065
  88. BUDESONIDE [Suspect]
     Active Substance: BUDESONIDE
     Route: 048
  89. BUDESONIDE [Suspect]
     Active Substance: BUDESONIDE
     Dosage: 1 DOSAGE FORM 1 EVERY 1 DAYS
     Route: 048
  90. BUDESONIDE [Suspect]
     Active Substance: BUDESONIDE
     Route: 065
  91. BUDESONIDE [Suspect]
     Active Substance: BUDESONIDE
     Dosage: 8 DOSAGE FORM 1 EVERY 1 DAYS
     Route: 048
  92. BUDESONIDE [Suspect]
     Active Substance: BUDESONIDE
     Dosage: 1 DOSAGE FORM 1 EVERY 1 DAYS
     Route: 048
  93. BUDESONIDE [Suspect]
     Active Substance: BUDESONIDE
     Route: 065
  94. BUDESONIDE [Suspect]
     Active Substance: BUDESONIDE
     Dosage: 245 DOSAGE FORM 1 EVERY 1 DAYS
     Route: 048
  95. BUDESONIDE [Suspect]
     Active Substance: BUDESONIDE
     Route: 065
  96. BUDESONIDE [Suspect]
     Active Substance: BUDESONIDE
     Route: 048
  97. BUDESONIDE [Suspect]
     Active Substance: BUDESONIDE
     Route: 048
  98. BUDESONIDE [Suspect]
     Active Substance: BUDESONIDE
     Route: 048
  99. BUDESONIDE [Suspect]
     Active Substance: BUDESONIDE
     Route: 065
  100. BUDESONIDE [Suspect]
     Active Substance: BUDESONIDE
     Dosage: 1 DOSAGE FORM 1 EVERY 1 DAYS
     Route: 065
  101. BUDESONIDE [Suspect]
     Active Substance: BUDESONIDE
     Dosage: 1 DOSAGE FORM 1 EVERY 1 DAYS
     Route: 048
  102. BUDESONIDE [Suspect]
     Active Substance: BUDESONIDE
     Route: 065
  103. BUDESONIDE [Suspect]
     Active Substance: BUDESONIDE
     Route: 048
  104. HYDROCORTISONE ACETATE [Suspect]
     Active Substance: HYDROCORTISONE ACETATE
     Indication: Crohn^s disease
     Dosage: UNK 1 EVERY 1 DAYS
     Route: 065
  105. HYDROCORTISONE ACETATE [Suspect]
     Active Substance: HYDROCORTISONE ACETATE
     Indication: Colitis ulcerative
     Route: 048
  106. HYDROCORTISONE ACETATE [Suspect]
     Active Substance: HYDROCORTISONE ACETATE
     Dosage: 1 DOSAGE FORM 1 EVERY 1 DAYS
     Route: 048
  107. HYDROCORTISONE ACETATE [Suspect]
     Active Substance: HYDROCORTISONE ACETATE
     Route: 048
  108. HYDROCORTISONE ACETATE [Suspect]
     Active Substance: HYDROCORTISONE ACETATE
     Route: 065
  109. HYDROCORTISONE ACETATE [Suspect]
     Active Substance: HYDROCORTISONE ACETATE
     Dosage: 8 DOSAGE FORM 1 EVERY 1 DAYS
     Route: 048
  110. HYDROCORTISONE ACETATE [Suspect]
     Active Substance: HYDROCORTISONE ACETATE
     Route: 065
  111. HYDROCORTISONE ACETATE [Suspect]
     Active Substance: HYDROCORTISONE ACETATE
     Route: 065
  112. HYDROCORTISONE ACETATE [Suspect]
     Active Substance: HYDROCORTISONE ACETATE
     Route: 048
  113. HYDROCORTISONE ACETATE [Suspect]
     Active Substance: HYDROCORTISONE ACETATE
     Route: 065
  114. HYDROCORTISONE ACETATE [Suspect]
     Active Substance: HYDROCORTISONE ACETATE
     Route: 065
  115. HYDROCORTISONE ACETATE [Suspect]
     Active Substance: HYDROCORTISONE ACETATE
     Route: 048
  116. HYDROCORTISONE ACETATE [Suspect]
     Active Substance: HYDROCORTISONE ACETATE
     Route: 065
  117. HYDROCORTISONE ACETATE [Suspect]
     Active Substance: HYDROCORTISONE ACETATE
     Route: 065
  118. HYDROCORTISONE [Suspect]
     Active Substance: HYDROCORTISONE
     Indication: Crohn^s disease
     Route: 065
  119. HYDROCORTISONE [Suspect]
     Active Substance: HYDROCORTISONE
     Indication: Colitis ulcerative
     Dosage: 1 DOSAGE FORM 1 EVERY 1 DAYS
     Route: 048
  120. HYDROCORTISONE [Suspect]
     Active Substance: HYDROCORTISONE
     Dosage: 8 DOSAGE FORM 1 EVERY 1 DAYS
     Route: 065
  121. HYDROCORTISONE [Suspect]
     Active Substance: HYDROCORTISONE
     Dosage: 1 DOSAGE FORM 1 EVERY 1 DAYS
     Route: 065
  122. HYDROCORTISONE [Suspect]
     Active Substance: HYDROCORTISONE
     Dosage: 1 DOSAGE FORM 1 EVERY 1 DAYS
     Route: 048
  123. HYDROCORTISONE [Suspect]
     Active Substance: HYDROCORTISONE
     Route: 065
  124. HYDROCORTISONE [Suspect]
     Active Substance: HYDROCORTISONE
     Route: 048
  125. HYDROCORTISONE [Suspect]
     Active Substance: HYDROCORTISONE
     Route: 048
  126. HYDROCORTISONE [Suspect]
     Active Substance: HYDROCORTISONE
     Route: 048
  127. HYDROCORTISONE [Suspect]
     Active Substance: HYDROCORTISONE
     Dosage: 1 DOSAGE FORM 1 EVERY 1 DAYS
     Route: 065
  128. HYDROCORTISONE [Suspect]
     Active Substance: HYDROCORTISONE
     Route: 065
  129. HYDROCORTISONE [Suspect]
     Active Substance: HYDROCORTISONE
     Dosage: UNK 1 EVERY 1 DAYS
     Route: 048
  130. DESOXIMETASONE [Suspect]
     Active Substance: DESOXIMETASONE
     Indication: Crohn^s disease
     Route: 048
  131. DESOXIMETASONE [Suspect]
     Active Substance: DESOXIMETASONE
     Route: 048
  132. DESOXIMETASONE [Suspect]
     Active Substance: DESOXIMETASONE
     Route: 048
  133. DESOXIMETASONE [Suspect]
     Active Substance: DESOXIMETASONE
     Route: 048
  134. CORTISONE [Suspect]
     Active Substance: CORTISONE
     Indication: Crohn^s disease
     Route: 065
  135. CORTISONE [Suspect]
     Active Substance: CORTISONE
     Indication: Colitis ulcerative
  136. WARFARIN SODIUM [Suspect]
     Active Substance: WARFARIN SODIUM
     Indication: Deep vein thrombosis
     Route: 065
  137. WARFARIN SODIUM [Suspect]
     Active Substance: WARFARIN SODIUM
     Indication: Colitis ulcerative
     Route: 048
  138. WARFARIN SODIUM [Suspect]
     Active Substance: WARFARIN SODIUM
     Route: 065
  139. WARFARIN SODIUM [Suspect]
     Active Substance: WARFARIN SODIUM
     Route: 048
  140. HYDROCORTISONE [Suspect]
     Active Substance: HYDROCORTISONE
     Indication: Crohn^s disease
     Route: 048
  141. HYDROCORTISONE [Suspect]
     Active Substance: HYDROCORTISONE
     Indication: Colitis ulcerative
     Route: 048
  142. HYDROCORTISONE [Suspect]
     Active Substance: HYDROCORTISONE
     Route: 048
  143. HYDROCORTISONE [Suspect]
     Active Substance: HYDROCORTISONE
     Route: 048
  144. HYDROCORTISONE [Suspect]
     Active Substance: HYDROCORTISONE
     Dosage: 1 DOSAGE FORM 1 EVERY 1 DAYS
     Route: 065
  145. HYDROCORTISONE [Suspect]
     Active Substance: HYDROCORTISONE
     Route: 065
  146. HYDROCORTISONE [Suspect]
     Active Substance: HYDROCORTISONE
     Route: 065
  147. HYDROCORTISONE [Suspect]
     Active Substance: HYDROCORTISONE
     Route: 065
  148. HYDROCORTISONE [Suspect]
     Active Substance: HYDROCORTISONE
     Dosage: 1 DOSAGE FORM 1 EVERY 1 DAYS
     Route: 065
  149. HYDROCORTISONE [Suspect]
     Active Substance: HYDROCORTISONE
     Route: 065
  150. HYDROCORTISONE [Suspect]
     Active Substance: HYDROCORTISONE
     Route: 048
  151. HYDROCORTISONE [Suspect]
     Active Substance: HYDROCORTISONE
     Dosage: 8 DOSAGE FORM 1 EVERY 1 DAYS
     Route: 065
  152. HYDROCORTISONE [Suspect]
     Active Substance: HYDROCORTISONE
     Route: 042
  153. ACETAMINOPHEN [Suspect]
     Active Substance: ACETAMINOPHEN
     Indication: Product used for unknown indication
     Route: 065
  154. ACETAMINOPHEN [Suspect]
     Active Substance: ACETAMINOPHEN
     Indication: Ill-defined disorder
     Route: 065
  155. DAPAGLIFLOZIN [Suspect]
     Active Substance: DAPAGLIFLOZIN
     Indication: Ill-defined disorder
     Route: 065
  156. DAPAGLIFLOZIN [Suspect]
     Active Substance: DAPAGLIFLOZIN
     Indication: Cardiac failure chronic
     Route: 065
  157. PREDNISONE [Suspect]
     Active Substance: PREDNISONE
     Indication: Colitis ulcerative
     Route: 065
  158. PREDNISONE [Suspect]
     Active Substance: PREDNISONE
     Route: 065
  159. CHOLECALCIFEROL [Suspect]
     Active Substance: CHOLECALCIFEROL
     Indication: Product used for unknown indication
     Route: 065
  160. CHOLECALCIFEROL [Suspect]
     Active Substance: CHOLECALCIFEROL
     Route: 065
  161. ROSUVASTATIN [Suspect]
     Active Substance: ROSUVASTATIN
     Indication: Ill-defined disorder
     Route: 065
  162. ROSUVASTATIN [Suspect]
     Active Substance: ROSUVASTATIN
     Route: 065
  163. LISDEXAMFETAMINE DIMESYLATE [Suspect]
     Active Substance: LISDEXAMFETAMINE DIMESYLATE
     Indication: Product used for unknown indication
     Route: 065
  164. ASPIRIN [Suspect]
     Active Substance: ASPIRIN
     Indication: Ill-defined disorder
     Route: 065
  165. CORTIFOAM [Suspect]
     Active Substance: HYDROCORTISONE ACETATE
     Indication: Colitis ulcerative
     Route: 065
  166. CORTIFOAM [Suspect]
     Active Substance: HYDROCORTISONE ACETATE
     Dosage: 4 DOSAGE FORM 1 EVERY 1 DAYS
     Route: 065
  167. CORTIFOAM [Suspect]
     Active Substance: HYDROCORTISONE ACETATE
     Route: 065
  168. CORTIFOAM [Suspect]
     Active Substance: HYDROCORTISONE ACETATE
     Dosage: 1 DOSAGE FORM 1 EVERY 1 DAYS
     Route: 065
  169. COMIRNATY (TOZINAMERAN) [Suspect]
     Active Substance: TOZINAMERAN
     Indication: Product used for unknown indication
     Route: 065
  170. COMIRNATY (TOZINAMERAN) [Suspect]
     Active Substance: TOZINAMERAN
     Route: 065
  171. CANDESARTAN [Suspect]
     Active Substance: CANDESARTAN
     Indication: Colitis ulcerative
     Route: 048
  172. BUDESONIDE [Suspect]
     Active Substance: BUDESONIDE
     Indication: Product used for unknown indication
     Route: 065
  173. BUDESONIDE [Suspect]
     Active Substance: BUDESONIDE
     Route: 048
  174. BUDESONIDE [Suspect]
     Active Substance: BUDESONIDE
     Route: 048
  175. BUDESONIDE [Suspect]
     Active Substance: BUDESONIDE
     Route: 065
  176. BUDESONIDE [Suspect]
     Active Substance: BUDESONIDE
     Route: 065
  177. BUDESONIDE [Suspect]
     Active Substance: BUDESONIDE
     Route: 048
  178. BUDESONIDE [Suspect]
     Active Substance: BUDESONIDE
     Route: 048
  179. BUDESONIDE [Suspect]
     Active Substance: BUDESONIDE
     Route: 048
  180. BUDESONIDE [Suspect]
     Active Substance: BUDESONIDE
     Route: 048
  181. BUDESONIDE [Suspect]
     Active Substance: BUDESONIDE
     Route: 048
  182. BUDESONIDE [Suspect]
     Active Substance: BUDESONIDE
     Route: 048
  183. BUDESONIDE [Suspect]
     Active Substance: BUDESONIDE
     Route: 048
  184. METFORMIN [Suspect]
     Active Substance: METFORMIN HYDROCHLORIDE
     Indication: Product used for unknown indication
     Route: 065
  185. METFORMIN [Suspect]
     Active Substance: METFORMIN HYDROCHLORIDE
     Route: 065
  186. WARFARIN [Suspect]
     Active Substance: WARFARIN
     Indication: Deep vein thrombosis
     Route: 065
  187. WARFARIN [Suspect]
     Active Substance: WARFARIN
     Indication: Colitis ulcerative
     Dosage: 1 DOSAGE FORM1 EVERY 1 DAYS
     Route: 065
  188. WARFARIN [Suspect]
     Active Substance: WARFARIN
     Route: 065
  189. WARFARIN [Suspect]
     Active Substance: WARFARIN
     Dosage: 1 DOSAGE FORM1 EVERY 1 DAYS
     Route: 065
  190. WARFARIN [Suspect]
     Active Substance: WARFARIN
     Route: 048
  191. WARFARIN [Suspect]
     Active Substance: WARFARIN
     Route: 065
  192. INFLIXIMAB [Suspect]
     Active Substance: INFLIXIMAB
     Indication: Crohn^s disease
     Route: 065
  193. INFLIXIMAB [Suspect]
     Active Substance: INFLIXIMAB
     Indication: Colitis ulcerative
     Route: 065
  194. INFLIXIMAB [Suspect]
     Active Substance: INFLIXIMAB
     Route: 042
  195. INFLIXIMAB [Suspect]
     Active Substance: INFLIXIMAB
     Route: 048
  196. INFLIXIMAB [Suspect]
     Active Substance: INFLIXIMAB
     Route: 065
  197. HUMIRA [Suspect]
     Active Substance: ADALIMUMAB
     Indication: Crohn^s disease
     Route: 065
  198. HUMIRA [Suspect]
     Active Substance: ADALIMUMAB
     Route: 065
  199. GABAPENTIN [Suspect]
     Active Substance: GABAPENTIN
     Indication: Product used for unknown indication
     Route: 065
  200. FUROSEMIDE [Suspect]
     Active Substance: FUROSEMIDE
     Indication: Product used for unknown indication
     Route: 065
  201. FELODIPINE [Suspect]
     Active Substance: FELODIPINE
     Indication: Hypertension
     Route: 048
  202. ESOMEPRAZOLE [Suspect]
     Active Substance: ESOMEPRAZOLE
     Indication: Gastritis
     Route: 065
  203. ESCITALOPRAM [Suspect]
     Active Substance: ESCITALOPRAM OXALATE
     Indication: Product used for unknown indication
     Route: 065
  204. EPINEPHRINE [Suspect]
     Active Substance: EPINEPHRINE
     Indication: Product used for unknown indication
     Route: 065
  205. EPINEPHRINE [Suspect]
     Active Substance: EPINEPHRINE
     Route: 065
  206. ENTYVIO [Suspect]
     Active Substance: VEDOLIZUMAB
     Indication: Product used for unknown indication
     Route: 065
  207. ENTYVIO [Suspect]
     Active Substance: VEDOLIZUMAB
     Indication: Deep vein thrombosis
     Dosage: 1 DOSAGE FORM 1 EVERY 1 DAYS
     Route: 048
  208. ENTYVIO [Suspect]
     Active Substance: VEDOLIZUMAB
     Indication: Colitis ulcerative
     Route: 048
  209. ENTYVIO [Suspect]
     Active Substance: VEDOLIZUMAB
     Route: 065
  210. ENTYVIO [Suspect]
     Active Substance: VEDOLIZUMAB
     Route: 042
  211. ENTYVIO [Suspect]
     Active Substance: VEDOLIZUMAB
     Route: 065
  212. ENTYVIO [Suspect]
     Active Substance: VEDOLIZUMAB
     Route: 042
  213. ENTYVIO [Suspect]
     Active Substance: VEDOLIZUMAB
     Dosage: UNK1 EVERY 1 DAYS
     Route: 048
  214. SULFASALAZINE [Suspect]
     Active Substance: SULFASALAZINE
     Indication: Colitis ulcerative
     Route: 065
  215. SULFASALAZINE [Suspect]
     Active Substance: SULFASALAZINE
     Indication: Arthritis
     Route: 048
  216. SULFASALAZINE [Suspect]
     Active Substance: SULFASALAZINE
     Route: 048
  217. SULFASALAZINE [Suspect]
     Active Substance: SULFASALAZINE
     Route: 065
  218. SULFASALAZINE [Suspect]
     Active Substance: SULFASALAZINE
     Route: 048
  219. VYVANSE [Suspect]
     Active Substance: LISDEXAMFETAMINE DIMESYLATE
     Indication: Attention deficit hyperactivity disorder
     Route: 065
  220. MESALAMINE [Suspect]
     Active Substance: MESALAMINE
     Indication: Product used for unknown indication
     Route: 048
  221. REMICADE [Suspect]
     Active Substance: INFLIXIMAB
     Indication: Crohn^s disease
     Route: 042
  222. REMICADE [Suspect]
     Active Substance: INFLIXIMAB
     Indication: Colitis ulcerative
     Route: 042
  223. REMICADE [Suspect]
     Active Substance: INFLIXIMAB
     Route: 042
  224. REMICADE [Suspect]
     Active Substance: INFLIXIMAB
     Route: 042
  225. OMEPRAZOLE [Suspect]
     Active Substance: OMEPRAZOLE
     Indication: Product used for unknown indication
     Route: 065
  226. PARA-AMINOSALICYLIC ACID [Suspect]
     Active Substance: AMINOSALICYLIC ACID
     Indication: Deep vein thrombosis
     Route: 065
  227. PARA-AMINOSALICYLIC ACID [Suspect]
     Active Substance: AMINOSALICYLIC ACID
     Indication: Colitis ulcerative
     Route: 065
  228. OXYCODONE [Suspect]
     Active Substance: OXYCODONE
     Indication: Product used for unknown indication
     Route: 065
  229. MEBEVERINE HYDROCHLORIDE [Suspect]
     Active Substance: MEBEVERINE HYDROCHLORIDE
     Indication: Product used for unknown indication
     Route: 065
  230. LEVOTHYROXINE SODIUM [Suspect]
     Active Substance: LEVOTHYROXINE SODIUM
     Indication: Product used for unknown indication
     Route: 065
  231. AMLODIPINE BESYLATE [Concomitant]
     Active Substance: AMLODIPINE BESYLATE
     Indication: Product used for unknown indication
     Route: 065
  232. ATORVASTATIN CALCIUM [Concomitant]
     Active Substance: ATORVASTATIN CALCIUM
     Indication: Product used for unknown indication
     Route: 065
  233. BETNOVATE [Concomitant]
     Active Substance: BETAMETHASONE
     Indication: Product used for unknown indication
     Route: 065
  234. BISOPROLOL [Concomitant]
     Active Substance: BISOPROLOL
     Indication: Product used for unknown indication
     Route: 065
  235. CALCIUM\CHOLECALCIFEROL [Concomitant]
     Active Substance: CALCIUM\CHOLECALCIFEROL
     Indication: Product used for unknown indication
     Route: 065
  236. DORZOLAMIDE [Concomitant]
     Active Substance: DORZOLAMIDE
     Indication: Product used for unknown indication
     Route: 065
  237. EMPAGLIFLOZIN [Concomitant]
     Active Substance: EMPAGLIFLOZIN
     Indication: Product used for unknown indication
     Route: 065
  238. FESOTERODINE FUMARATE [Concomitant]
     Active Substance: FESOTERODINE FUMARATE
     Indication: Product used for unknown indication
     Route: 065
  239. FOLIC ACID [Concomitant]
     Active Substance: FOLIC ACID
     Indication: Product used for unknown indication
     Route: 065
  240. LATANOPROST [Concomitant]
     Active Substance: LATANOPROST
     Indication: Product used for unknown indication
     Route: 065
  241. LANSOPRAZOLE [Concomitant]
     Active Substance: LANSOPRAZOLE
     Indication: Product used for unknown indication
     Route: 065
  242. LYRICA [Concomitant]
     Active Substance: PREGABALIN
     Indication: Product used for unknown indication
     Route: 065
  243. METHOTREXATE [Concomitant]
     Active Substance: METHOTREXATE
     Indication: Product used for unknown indication
     Route: 065
  244. NITROFURANTOIN [Concomitant]
     Active Substance: NITROFURANTOIN
     Indication: Product used for unknown indication
     Route: 065
  245. PRAVASTATIN SODIUM [Concomitant]
     Active Substance: PRAVASTATIN SODIUM
     Indication: Product used for unknown indication
     Route: 065
  246. RAMIPRIL [Concomitant]
     Active Substance: RAMIPRIL
     Indication: Product used for unknown indication
     Route: 065
  247. RIVAROXABAN [Concomitant]
     Active Substance: RIVAROXABAN
     Route: 065
  248. TAMSULOSIN [Concomitant]
     Active Substance: TAMSULOSIN
     Indication: Product used for unknown indication
     Route: 065
  249. TETRAHYDROZOLINE HYDROCHLORIDE [Concomitant]
     Active Substance: TETRAHYDROZOLINE HYDROCHLORIDE
     Indication: Product used for unknown indication
     Route: 065
  250. XELJANZ [Concomitant]
     Active Substance: TOFACITINIB CITRATE
     Indication: Product used for unknown indication
     Route: 065

REACTIONS (53)
  - Tubulointerstitial nephritis [Not Recovered/Not Resolved]
  - Palpitations [Not Recovered/Not Resolved]
  - Parosmia [Not Recovered/Not Resolved]
  - Adverse drug reaction [Not Recovered/Not Resolved]
  - Depression [Not Recovered/Not Resolved]
  - Alcohol poisoning [Not Recovered/Not Resolved]
  - Somnolence [Not Recovered/Not Resolved]
  - Swollen tongue [Not Recovered/Not Resolved]
  - Steroid dependence [Not Recovered/Not Resolved]
  - Stress [Not Recovered/Not Resolved]
  - Impaired work ability [Not Recovered/Not Resolved]
  - Condition aggravated [Not Recovered/Not Resolved]
  - Vertigo [Not Recovered/Not Resolved]
  - Burns second degree [Not Recovered/Not Resolved]
  - Arthritis [Not Recovered/Not Resolved]
  - Weight decreased [Not Recovered/Not Resolved]
  - Bronchiectasis [Not Recovered/Not Resolved]
  - Impaired quality of life [Not Recovered/Not Resolved]
  - Colitis ulcerative [Not Recovered/Not Resolved]
  - Frequent bowel movements [Not Recovered/Not Resolved]
  - Tinnitus [Not Recovered/Not Resolved]
  - Loss of personal independence in daily activities [Not Recovered/Not Resolved]
  - Migraine [Not Recovered/Not Resolved]
  - Hypopnoea [Not Recovered/Not Resolved]
  - Nightmare [Not Recovered/Not Resolved]
  - Gingival pain [Not Recovered/Not Resolved]
  - Deep vein thrombosis [Not Recovered/Not Resolved]
  - Eczema [Not Recovered/Not Resolved]
  - Catarrh [Not Recovered/Not Resolved]
  - Cardiac murmur [Not Recovered/Not Resolved]
  - Dysgeusia [Not Recovered/Not Resolved]
  - Rhinitis [Not Recovered/Not Resolved]
  - Haematochezia [Not Recovered/Not Resolved]
  - Pulmonary embolism [Not Recovered/Not Resolved]
  - Abdominal discomfort [Not Recovered/Not Resolved]
  - Cerebrovascular accident [Not Recovered/Not Resolved]
  - Confusional state [Not Recovered/Not Resolved]
  - Headache [Not Recovered/Not Resolved]
  - Systemic lupus erythematosus [Not Recovered/Not Resolved]
  - Rectal haemorrhage [Not Recovered/Not Resolved]
  - Rash [Not Recovered/Not Resolved]
  - COVID-19 [Not Recovered/Not Resolved]
  - Pyrexia [Not Recovered/Not Resolved]
  - Pain in extremity [Not Recovered/Not Resolved]
  - Pain [Not Recovered/Not Resolved]
  - Fatigue [Not Recovered/Not Resolved]
  - Accidental overdose [Not Recovered/Not Resolved]
  - Drug ineffective [Not Recovered/Not Resolved]
  - Inappropriate schedule of product administration [Not Recovered/Not Resolved]
  - Product use in unapproved indication [Not Recovered/Not Resolved]
  - Medication error [Not Recovered/Not Resolved]
  - Intentional product use issue [Not Recovered/Not Resolved]
  - Off label use [Not Recovered/Not Resolved]
